FAERS Safety Report 7665909-4 (Version None)
Quarter: 2011Q3

REPORT INFORMATION
  Report Type: 
  Country: None (occurrence: None)
  Receive Date: 20110806
  Receipt Date: 20110505
  Transmission Date: 20111222
  Serious: No
  Sender: FDA-Public Use
  Company Number: US-ABBOTT-11P-163-0723596-00

PATIENT
  Sex: Male
  Weight: 90.8 kg

DRUGS (4)
  1. LEVOTHYROXINE SODIUM [Concomitant]
     Indication: PRODUCT USED FOR UNKNOWN INDICATION
  2. CRESTOR [Concomitant]
     Indication: PRODUCT USED FOR UNKNOWN INDICATION
     Dosage: CUT IN HALF
  3. TOPROL-XL [Concomitant]
     Indication: PRODUCT USED FOR UNKNOWN INDICATION
  4. NIASPAN [Suspect]
     Indication: BLOOD TRIGLYCERIDES INCREASED

REACTIONS (6)
  - DRUG DOSE OMISSION [None]
  - OEDEMA PERIPHERAL [None]
  - FLUSHING [None]
  - SWELLING FACE [None]
  - DYSPHONIA [None]
  - MALAISE [None]
